FAERS Safety Report 13158389 (Version 2)
Quarter: 2017Q1

REPORT INFORMATION
  Report Type: Report from Study
  Country: US (occurrence: US)
  Receive Date: 20170127
  Receipt Date: 20170201
  Transmission Date: 20170428
  Serious: Yes (Other)
  Sender: FDA-Public Use
  Company Number: US-SA-2017SA011727

PATIENT
  Age: 62 Year
  Sex: Female

DRUGS (1)
  1. LANTUS [Suspect]
     Active Substance: INSULIN GLARGINE
     Indication: DIABETES MELLITUS
     Route: 065
     Dates: start: 2015

REACTIONS (1)
  - Brain neoplasm malignant [Unknown]
